FAERS Safety Report 7480347-5 (Version None)
Quarter: 2011Q2

REPORT INFORMATION
  Report Type: 
  Country: None (occurrence: None)
  Receive Date: 20110512
  Receipt Date: 20110512
  Transmission Date: 20111010
  Serious: Yes (Hospitalization)
  Sender: FDA-Public Use
  Company Number: None

PATIENT
  Age: 65 Year
  Sex: Male
  Weight: 82.1 kg

DRUGS (3)
  1. IRINOTECAN HYDROCHLORIDE [Suspect]
     Indication: METASTASES TO LIVER
     Dosage: 300 MG ONCE IV
     Route: 042
     Dates: start: 20100309, end: 20110201
  2. IRINOTECAN HYDROCHLORIDE [Suspect]
     Indication: RECTAL CANCER STAGE III
     Dosage: 300 MG ONCE IV
     Route: 042
     Dates: start: 20100309, end: 20110201
  3. IRINOTECAN HYDROCHLORIDE [Suspect]
     Indication: RECTAL CANCER METASTATIC
     Dosage: 300 MG ONCE IV
     Route: 042
     Dates: start: 20100309, end: 20110201

REACTIONS (2)
  - DIARRHOEA [None]
  - ABDOMINAL PAIN [None]
